FAERS Safety Report 9555323 (Version 1)
Quarter: 2013Q3

REPORT INFORMATION
  Report Type: Spontaneous
  Country: US (occurrence: None)
  Receive Date: 20130925
  Receipt Date: 20130925
  Transmission Date: 20140515
  Serious: Yes (Life-Threatening, Hospitalization)
  Sender: FDA-Public Use
  Company Number: None

PATIENT
  Age: 33 Year
  Sex: Male
  Weight: 111.5 kg

DRUGS (3)
  1. PALIPERIDONE [Suspect]
     Indication: BIPOLAR I DISORDER
     Dosage: SQ
     Route: 058
     Dates: start: 20120803, end: 20130411
  2. PALIPERIDONE [Suspect]
     Indication: PSYCHOTIC DISORDER
     Dosage: SQ
     Route: 058
     Dates: start: 20120803, end: 20130411
  3. PALIPERIDONE [Suspect]
     Indication: BIPOLAR I DISORDER
     Dosage: SQ
     Route: 058
     Dates: start: 20120803, end: 20130411

REACTIONS (7)
  - Rhabdomyolysis [None]
  - Neuroleptic malignant syndrome [None]
  - Myalgia [None]
  - Malaise [None]
  - Chills [None]
  - Fatigue [None]
  - Blood creatine phosphokinase increased [None]
